FAERS Safety Report 8317983-X (Version None)
Quarter: 2012Q2

REPORT INFORMATION
  Report Type: 
  Country: None (occurrence: None)
  Receive Date: 20120427
  Receipt Date: 20120424
  Transmission Date: 20120825
  Serious: Yes (Other)
  Sender: FDA-Public Use
  Company Number: US-BAYER-2012-040500

PATIENT

DRUGS (1)
  1. NAPROXEN SODIUM [Suspect]
     Dosage: 3 U, UNK
     Route: 048

REACTIONS (1)
  - LOSS OF CONSCIOUSNESS [None]
